FAERS Safety Report 8546388 (Version 4)
Quarter: 2012Q4

REPORT INFORMATION
  Report Type: 
  Country: FR (occurrence: FR)
  Receive Date: 20120504
  Receipt Date: 20120925
  Transmission Date: 20130627
  Serious: Yes (Hospitalization, Other)
  Sender: FDA-Public Use
  Company Number: FR-CELGENEUS-056-21880-12042569

PATIENT
  Age: 80 Year
  Sex: Male
  Weight: 57 kg

DRUGS (5)
  1. REVLIMID [Suspect]
     Indication: MULTIPLE MYELOMA
     Route: 048
     Dates: start: 20110128, end: 20120322
  2. DEXAMETHASONE [Concomitant]
     Indication: MULTIPLE MYELOMA WITHOUT MENTION OF REMISSION
     Route: 065
     Dates: start: 20110128, end: 20120322
  3. EPO [Concomitant]
     Indication: MULTIPLE MYELOMA WITHOUT MENTION OF REMISSION
     Route: 065
  4. COVERSYL [Concomitant]
     Indication: DRUG USE FOR UNKNOWN INDICATION
     Dosage: 2 Milligram
     Route: 065
     Dates: start: 2007
  5. BINOCRIT [Concomitant]
     Indication: DRUG USE FOR UNKNOWN INDICATION
     Dosage: 2857.1429 Milligram
     Route: 065
     Dates: start: 20120224, end: 20120322

REACTIONS (1)
  - Acute myeloid leukaemia [Not Recovered/Not Resolved]
